FAERS Safety Report 5895446-9 (Version None)
Quarter: 2008Q3

REPORT INFORMATION
  Report Type: 
  Country: None (occurrence: None)
  Receive Date: 20080923
  Receipt Date: 20080923
  Transmission Date: 20090109
  Serious: No
  Sender: FDA-Public Use
  Company Number: None

PATIENT
  Age: 53 Year
  Sex: Female
  Weight: 113.3993 kg

DRUGS (2)
  1. ABILIFY [Suspect]
     Indication: BIPOLAR DISORDER
     Dates: start: 20080621, end: 20080624
  2. ABILIFY [Suspect]
     Indication: DEPRESSION
     Dates: start: 20080621, end: 20080624

REACTIONS (2)
  - DYSKINESIA [None]
  - IMPAIRED WORK ABILITY [None]
